FAERS Safety Report 9144551 (Version 1)
Quarter: 2013Q1

REPORT INFORMATION
  Report Type: Spontaneous
  Country: US (occurrence: US)
  Receive Date: 20130306
  Receipt Date: 20130306
  Transmission Date: 20140127
  Serious: Yes (Death)
  Sender: FDA-Public Use
  Company Number: CHPA2013US003992

PATIENT
  Sex: Male

DRUGS (3)
  1. TRANSDERM SCOP [Suspect]
     Dosage: UNK, UNK
     Route: 062
     Dates: end: 20101214
  2. AMPYRA [Suspect]
     Indication: MULTIPLE SCLEROSIS
     Dosage: 10 MG, UNK
     Route: 048
     Dates: start: 201206, end: 201210
  3. AMPYRA [Suspect]
     Dosage: 10 MG, BID
     Route: 048
     Dates: start: 20100504, end: 20101214

REACTIONS (3)
  - Completed suicide [Fatal]
  - Gait disturbance [Recovered/Resolved]
  - Fall [Recovered/Resolved]
